FAERS Safety Report 4286296-8 (Version None)
Quarter: 2004Q1

REPORT INFORMATION
  Report Type: 
  Country: None (occurrence: None)
  Receive Date: 20040129
  Receipt Date: 20030227
  Transmission Date: 20041129
  Serious: Yes (Hospitalization)
  Sender: FDA-Public Use
  Company Number: A001-002-005528

PATIENT
  Age: 51 Year
  Sex: Male
  Weight: 104.5 kg

DRUGS (5)
  1. ARICEPT [Suspect]
     Dosage: 5 MG, 1 IN 1 D; ORAL
     Route: 048
     Dates: start: 20010405, end: 20010417
  2. ANTI-INFLAMMATORY DRUG (UNSPECIFIED) (ANT-IINFLAMMATORY/ANT-IRHEUMATIC [Concomitant]
  3. ZYBAN [Concomitant]
  4. VIOXX [Concomitant]
  5. DEPO-TESTOSTERONE [Concomitant]

REACTIONS (1)
  - CEREBROVASCULAR ACCIDENT [None]
